FAERS Safety Report 4617952-7 (Version None)
Quarter: 2005Q1

REPORT INFORMATION
  Report Type: 
  Country: None (occurrence: None)
  Receive Date: 20050322
  Receipt Date: 20030519
  Transmission Date: 20050727
  Serious: Yes (Hospitalization)
  Sender: FDA-Public Use
  Company Number: 530#5#2003-00004

PATIENT
  Age: 65 Year
  Sex: Male

DRUGS (13)
  1. ALPROSTADIL (PAOD) , (BLINDED DRUG) [Suspect]
     Indication: INTERMITTENT CLAUDICATION
     Dosage: 2 TIMES 60 UG PER WEEK INTRAVENOUS DRIP
     Route: 041
     Dates: start: 20030331, end: 20030512
  2. ALTERNATIVE DRUG, (BLINDED DRUG) (ALTERNATIVE DRUG) [Suspect]
     Indication: INTERMITTENT CLAUDICATION
     Dosage: 2 X 600 MG PER DAY ORAL
     Route: 048
     Dates: start: 20030331, end: 20030516
  3. BISOPROLOL 5MG, TABLETS (BISOPROLOL) [Concomitant]
  4. DILTIAZEM HYDROCHLORIDE 90MG, CAPSULES SR (DILTIAZEM) [Concomitant]
  5. DOXAZOSIN 2MG, TABLETS (DOXAZOSIN) [Concomitant]
  6. ACETYLSALICYLIC ACID 300MG / 100MG, TABLETS (ACETYLSALICYLIC ACID) [Concomitant]
  7. PIRETANIDE 6MG, TABLETS (PIRETANIDE) [Concomitant]
  8. ATORVASTATIN 40MG / 20MG, COATED TABLETS (ATORVASTATIN) [Concomitant]
  9. DOXAZOSIN                 (DOXAZOSIN) [Concomitant]
  10. INSULIN HUMAN, AMP SC (INSULIN HUMAN INJECTION, ISOPHANE) [Concomitant]
     Route: 058
  11. INSULIN GLARGINE, AMP SC (INSULIN HUMAN) [Concomitant]
     Route: 058
  12. RAMIPRIL 2.5MG / HYDROCHLOROTHIAZIDE 12.5MG [Concomitant]
  13. CLOPIDOGREL 75MG, (CLOPIDOGREL SULFATE) [Concomitant]

REACTIONS (12)
  - ANGINA PECTORIS [None]
  - ATRIOVENTRICULAR BLOCK FIRST DEGREE [None]
  - BLOOD CREATINE PHOSPHOKINASE INCREASED [None]
  - CORONARY ARTERY OCCLUSION [None]
  - CORONARY ARTERY STENOSIS [None]
  - COUGH [None]
  - ELECTROCARDIOGRAM T WAVE INVERSION [None]
  - MYOGLOBIN BLOOD INCREASED [None]
  - OEDEMA PERIPHERAL [None]
  - REFUSAL OF TREATMENT BY PATIENT [None]
  - TROPONIN I INCREASED [None]
  - WHITE BLOOD CELL COUNT INCREASED [None]
